FAERS Safety Report 19976068 (Version 5)
Quarter: 2023Q1

REPORT INFORMATION
  Report Type: Spontaneous
  Country: US (occurrence: US)
  Receive Date: 20211020
  Receipt Date: 20230111
  Transmission Date: 20230418
  Serious: No
  Sender: FDA-Public Use
  Company Number: US-PFIZER INC-202101236386

PATIENT
  Age: 67 Year
  Sex: Female

DRUGS (2)
  1. XELJANZ XR [Suspect]
     Active Substance: TOFACITINIB CITRATE
     Indication: Rheumatoid arthritis
     Dosage: 11 MG, 1X/DAY
     Route: 048
     Dates: start: 2020
  2. METHOTREXATE [Concomitant]
     Active Substance: METHOTREXATE
     Dosage: UNK

REACTIONS (13)
  - Pain [Unknown]
  - Memory impairment [Unknown]
  - Arthritis [Recovered/Resolved]
  - Musculoskeletal discomfort [Recovered/Resolved]
  - Blood pressure increased [Recovered/Resolved]
  - Arthralgia [Unknown]
  - Blood cholesterol increased [Unknown]
  - Onychomycosis [Unknown]
  - Peripheral swelling [Unknown]
  - Onychalgia [Unknown]
  - Alopecia [Unknown]
  - Product dose omission in error [Unknown]
  - Inappropriate schedule of product administration [Unknown]

NARRATIVE: CASE EVENT DATE: 20220101
